FAERS Safety Report 7337640-6 (Version None)
Quarter: 2011Q1

REPORT INFORMATION
  Report Type: 
  Country: None (occurrence: None)
  Receive Date: 20110228
  Receipt Date: 20110216
  Transmission Date: 20110831
  Serious: Yes (Life-Threatening, Hospitalization)
  Sender: FDA-Public Use
  Company Number: 024137

PATIENT
  Sex: Female
  Weight: 40 kg

DRUGS (6)
  1. KEPPRA [Suspect]
     Indication: EPILEPSY
     Dosage: (1000 MG QD ORAL)
     Route: 048
     Dates: start: 20101206, end: 20101216
  2. ALEVIATIN /00017401/ [Concomitant]
  3. DORMICUM /00036201/ [Concomitant]
  4. LAMICTAL [Concomitant]
  5. TEGRETOL [Concomitant]
  6. THYRADIN [Concomitant]

REACTIONS (8)
  - ALANINE AMINOTRANSFERASE INCREASED [None]
  - GAMMA-GLUTAMYLTRANSFERASE INCREASED [None]
  - BLOOD SODIUM DECREASED [None]
  - BLOOD ALBUMIN DECREASED [None]
  - ASPARTATE AMINOTRANSFERASE INCREASED [None]
  - STATUS EPILEPTICUS [None]
  - BLOOD GLUCOSE INCREASED [None]
  - HEPATIC FUNCTION ABNORMAL [None]
